FAERS Safety Report 11684814 (Version 2)
Quarter: 2015Q4

REPORT INFORMATION
  Report Type: Spontaneous
  Country: US (occurrence: US)
  Receive Date: 20151029
  Receipt Date: 20151202
  Transmission Date: 20160304
  Serious: Yes (Other)
  Sender: FDA-Public Use
  Company Number: US-ROCHE-1652519

PATIENT
  Sex: Male

DRUGS (10)
  1. ESBRIET [Suspect]
     Active Substance: PIRFENIDONE
     Indication: PULMONARY FIBROSIS
     Dosage: 3 PILLS FIRST THREE WEEKS, SIX PILLS IN THE SECOND WEEK, 9 A DAY CONTINUING.
     Route: 065
     Dates: start: 20150925
  2. ZOLPIDEM [Concomitant]
     Active Substance: ZOLPIDEM\ZOLPIDEM TARTRATE
     Route: 065
  3. DOCUSATE [Concomitant]
     Active Substance: DOCUSATE
     Route: 065
  4. DRONEDARONE [Concomitant]
     Active Substance: DRONEDARONE
     Route: 065
  5. TAMSULOSIN [Concomitant]
     Active Substance: TAMSULOSIN
     Route: 065
  6. OXYGEN. [Concomitant]
     Active Substance: OXYGEN
  7. CEPHALEXIN. [Concomitant]
     Active Substance: CEPHALEXIN
     Route: 065
  8. OMEPRAZOLE. [Concomitant]
     Active Substance: OMEPRAZOLE
     Route: 065
  9. OXYCODONE [Concomitant]
     Active Substance: OXYCODONE
     Route: 065
  10. PREGABALIN. [Concomitant]
     Active Substance: PREGABALIN
     Route: 065

REACTIONS (4)
  - Arthralgia [Unknown]
  - Reading disorder [Unknown]
  - Diarrhoea [Unknown]
  - Headache [Unknown]
